FAERS Safety Report 18536340 (Version 1)
Quarter: 2020Q4

REPORT INFORMATION
  Report Type: Spontaneous
  Country: US (occurrence: US)
  Receive Date: 20201124
  Receipt Date: 20201124
  Transmission Date: 20210114
  Serious: No
  Sender: FDA-Public Use
  Company Number: US-AUROBINDO-AUR-APL-2020-021986

PATIENT
  Age: 59 Year
  Sex: Male

DRUGS (6)
  1. ASPIRIN. [Concomitant]
     Active Substance: ASPIRIN
     Indication: PRODUCT USED FOR UNKNOWN INDICATION
     Dosage: 81 MILLIGRAM, ONCE A DAY
     Route: 065
  2. COENZYME Q10 [Concomitant]
     Active Substance: DIETARY SUPPLEMENT\UBIDECARENONE
     Indication: PRODUCT USED FOR UNKNOWN INDICATION
     Dosage: UNK
     Route: 065
  3. LOSARTAN POTASSIUM TABLETS USP 50MG [Suspect]
     Active Substance: LOSARTAN POTASSIUM
     Dosage: 100 MILLIGRAM, ONCE A DAY
     Route: 048
     Dates: start: 201908, end: 201910
  4. METOPROLOL. [Concomitant]
     Active Substance: METOPROLOL
     Indication: HYPERTENSION
     Dosage: 25 MILLIGRAM, ONCE A DAY
     Route: 065
  5. LOSARTAN POTASSIUM TABLETS USP 50MG [Suspect]
     Active Substance: LOSARTAN POTASSIUM
     Indication: HYPERTENSION
     Dosage: 50 DOSAGE FORM, ONCE A DAY
     Route: 048
     Dates: start: 2010
  6. LIPITOR [Concomitant]
     Active Substance: ATORVASTATIN CALCIUM
     Indication: PRODUCT USED FOR UNKNOWN INDICATION
     Dosage: 40 MILLIGRAM, ONCE A DAY
     Route: 065

REACTIONS (2)
  - Drug ineffective [Unknown]
  - Tinea pedis [Not Recovered/Not Resolved]

NARRATIVE: CASE EVENT DATE: 201908
